FAERS Safety Report 19013244 (Version 6)
Quarter: 2021Q3

REPORT INFORMATION
  Report Type: Spontaneous
  Country: US (occurrence: US)
  Receive Date: 20210316
  Receipt Date: 20210915
  Transmission Date: 20211014
  Serious: Yes (Other)
  Sender: FDA-Public Use
  Company Number: US-PFIZER INC-2021210424

PATIENT
  Age: 55 Year
  Sex: Female
  Weight: 64.4 kg

DRUGS (12)
  1. ZINC. [Concomitant]
     Active Substance: ZINC
     Dosage: 66 MG (ZINC?15)
  2. CALCIUM [Concomitant]
     Active Substance: CALCIUM
     Dosage: CALCIUM 500(1250)
  3. VITAMIN C [Concomitant]
     Active Substance: ASCORBIC ACID
     Dosage: 1000 MG
  4. ANASTROZOLE. [Concomitant]
     Active Substance: ANASTROZOLE
     Dosage: 1 MG
  5. IBRANCE [Suspect]
     Active Substance: PALBOCICLIB
     Indication: BREAST CANCER
     Dosage: 125 MG, ONCE DAILY FOR 21 DAYS
     Dates: start: 20210115
  6. VITAMIN D3 [Concomitant]
     Active Substance: CHOLECALCIFEROL
     Dosage: 400 UNIT
  7. OMEPRAZOLE. [Concomitant]
     Active Substance: OMEPRAZOLE
     Dosage: 20 MG
  8. HYDROCODONE BITARTRATE. [Concomitant]
     Active Substance: HYDROCODONE BITARTRATE
     Dosage: UNK
  9. IBRANCE [Suspect]
     Active Substance: PALBOCICLIB
     Dosage: 100 MG, ONCE DAILY 21 DAYS ON THEN 7 DAYS OFF
     Route: 048
  10. IBRANCE [Suspect]
     Active Substance: PALBOCICLIB
     Dosage: 100 MG, ONCE DAILY FOR 21 DAYS
     Route: 048
     Dates: start: 202102, end: 20210827
  11. ZYRTEC [Concomitant]
     Active Substance: CETIRIZINE HYDROCHLORIDE
     Dosage: 10 MG
  12. GABAPENTIN. [Concomitant]
     Active Substance: GABAPENTIN
     Dosage: 100 MG

REACTIONS (7)
  - Blood count abnormal [Not Recovered/Not Resolved]
  - Dyspepsia [Not Recovered/Not Resolved]
  - Neoplasm malignant [Unknown]
  - Dry skin [Not Recovered/Not Resolved]
  - Gastrooesophageal reflux disease [Not Recovered/Not Resolved]
  - Second primary malignancy [Unknown]
  - Product dose omission in error [Unknown]

NARRATIVE: CASE EVENT DATE: 202103
